FAERS Safety Report 19455388 (Version 1)
Quarter: 2021Q2

REPORT INFORMATION
  Report Type: Spontaneous
  Country: CA (occurrence: CA)
  Receive Date: 20210623
  Receipt Date: 20210623
  Transmission Date: 20210717
  Serious: Yes (Other)
  Sender: FDA-Public Use
  Company Number: CA-JNJFOC-20210640738

PATIENT
  Age: 68 Year
  Sex: Male
  Weight: 85 kg

DRUGS (2)
  1. CEPHALEXINE [Suspect]
     Active Substance: CEPHALEXIN
     Indication: WOUND INFECTION
     Route: 065
  2. REMICADE [Suspect]
     Active Substance: INFLIXIMAB
     Indication: CROHN^S DISEASE
     Route: 042

REACTIONS (6)
  - Off label use [Unknown]
  - Intestinal haemorrhage [Unknown]
  - Skin laceration [Unknown]
  - Road traffic accident [Unknown]
  - Wound infection [Unknown]
  - Product use issue [Unknown]
